FAERS Safety Report 19161677 (Version 4)
Quarter: 2021Q3

REPORT INFORMATION
  Report Type: Report from Study
  Country: GB (occurrence: GB)
  Receive Date: 20210421
  Receipt Date: 20210724
  Transmission Date: 20211014
  Serious: Yes (Death, Hospitalization, Other)
  Sender: FDA-Public Use
  Company Number: GB-CELLTRION INC.-2021GB005383

PATIENT

DRUGS (54)
  1. DOCETAXEL. [Suspect]
     Active Substance: DOCETAXEL
     Indication: BREAST CANCER METASTATIC
     Dosage: 120 MG, EVERY 3 WEEKS, LAST DOSE RECEIVED ON 21MAR2017, 6 CYCLES (CUMULATIVE DOSE TO FIRST REACTION:
     Route: 042
     Dates: start: 20161117, end: 20170321
  2. BUPRENORPHINE. [Concomitant]
     Active Substance: BUPRENORPHINE
     Dosage: 10 UG, WEEKLY
     Route: 062
     Dates: start: 20181212, end: 20190326
  3. CANDESTAN [Concomitant]
     Indication: CANDIDA INFECTION
     Dosage: 100 MG
     Route: 067
     Dates: start: 20180419, end: 20180419
  4. DEXAMETHASONE. [Concomitant]
     Active Substance: DEXAMETHASONE
     Dosage: 2 MG, 1X/DAY  (CUMULATIVE DOSE TO FIRST REACTION: 32 MG)
     Route: 048
     Dates: start: 20170308, end: 20170831
  5. GABAPENTIN. [Concomitant]
     Active Substance: GABAPENTIN
     Indication: PAIN
     Dosage: 300 MG, 3X/DAY (CUMULATIVE DOSE TO FIRST REACTION: 268200.0 MG)
     Route: 048
     Dates: start: 20171116, end: 20180621
  6. OXYCODONE [Concomitant]
     Active Substance: OXYCODONE
     Dosage: UNK
     Dates: start: 20171130, end: 20190326
  7. DEXAMETHASONE. [Concomitant]
     Active Substance: DEXAMETHASONE
     Indication: METASTASES TO CENTRAL NERVOUS SYSTEM
     Dosage: 6 MG, 1X/DAY (CUMULATIVE DOSE TO FIRST REACTION: 32 MG)
     Route: 048
     Dates: start: 20170125
  8. DEXAMETHASONE. [Concomitant]
     Active Substance: DEXAMETHASONE
     Dosage: 8 MG, 2X/DAY (CUMULATIVE DOSE TO FIRST REACTION: 32 MG)
     Route: 048
     Dates: start: 20181206, end: 20181207
  9. ORAMORPH [Concomitant]
     Active Substance: MORPHINE SULFATE
     Dosage: 5 MG, UNK
     Route: 048
     Dates: start: 20180830, end: 20190326
  10. TRASTUZUMAB (UNKNOWN) [Suspect]
     Active Substance: TRASTUZUMAB
     Indication: BREAST CANCER METASTATIC
     Dosage: 798 MG (PLANNED NUMBER OF CYCLES COMPLETED) (DOSAGE FORM: 230; CUMULATIVE DOSE TO FIRST REACTION: 19
     Route: 042
     Dates: start: 20161020, end: 20161020
  11. DEXAMETHASONE. [Concomitant]
     Active Substance: DEXAMETHASONE
     Dosage: 14 MG (CUMULATIVE DOSE TO FIRST REACTION: 32 MG)
     Route: 048
     Dates: start: 20190124, end: 20190326
  12. LEVETIRACETAM. [Concomitant]
     Active Substance: LEVETIRACETAM
     Dosage: 250 MG, 1X/DAY (CUMULATIVE DOSE TO FIRST REACTION: 345000.0 MG)
     Route: 048
     Dates: start: 20181213, end: 20190103
  13. VOLTAROL [Concomitant]
     Active Substance: DICLOFENAC SODIUM
     Dosage: 1 DROP
     Route: 061
     Dates: start: 20181023, end: 20190326
  14. OXYCODONE [Concomitant]
     Active Substance: OXYCODONE
     Indication: BACK PAIN
     Dosage: UNK
     Dates: start: 20171012, end: 20171101
  15. DEXAMETHASONE. [Concomitant]
     Active Substance: DEXAMETHASONE
     Dosage: 6 MG (CUMULATIVE DOSE TO FIRST REACTION: 32 MG)
     Route: 048
     Dates: start: 20181205, end: 20181205
  16. DEXAMETHASONE. [Concomitant]
     Active Substance: DEXAMETHASONE
     Dosage: 4 MG, 1X/DAY (CUMULATIVE DOSE TO FIRST REACTION: 32 MG)
     Route: 048
     Dates: start: 20170126, end: 20170308
  17. FLUCLOXACILLIN [Concomitant]
     Active Substance: FLUCLOXACILLIN
     Dosage: 500 MG, 4X/DAY (CUMULATIVE DOSE TO FIRST REACTION: 16000 MG)
     Route: 048
     Dates: start: 20170406, end: 20170413
  18. FLUCONAZOLE. [Concomitant]
     Active Substance: FLUCONAZOLE
     Dosage: 50 MG, 1X/DAY (CUMULATIVE DOSE TO FIRST REACTION: 400 MG)
     Route: 048
     Dates: start: 20161207, end: 20161214
  19. IBUPROFEN. [Concomitant]
     Active Substance: IBUPROFEN
     Indication: PAIN
     Dosage: 200 MG FREQ:.33 D;
     Route: 048
     Dates: start: 20180308, end: 20180621
  20. LEVETIRACETAM. [Concomitant]
     Active Substance: LEVETIRACETAM
     Indication: SEIZURE
     Dosage: 500 MG, 2X/DAY (CUMULATIVE DOSE TO FIRST REACTION: 711000.0 MG)
     Route: 048
     Dates: start: 20190103, end: 20190326
  21. METOCLOPRAMIDE. [Concomitant]
     Active Substance: METOCLOPRAMIDE
     Dosage: 10 MG, UNK
     Route: 048
     Dates: start: 20170510, end: 20190326
  22. ONDASETRON [Concomitant]
     Active Substance: ONDANSETRON
     Indication: NAUSEA
     Dosage: 4 MG, UNK
     Route: 048
     Dates: start: 20170510, end: 20190326
  23. AMOXICILLIN. [Concomitant]
     Active Substance: AMOXICILLIN
     Indication: RHINITIS
     Dosage: 500 MG
     Route: 048
     Dates: start: 20181205, end: 20181205
  24. FILGRASTIM [Concomitant]
     Active Substance: FILGRASTIM
     Dosage: 480 UG, DAYS 2?6 POST CHEMO
     Route: 058
     Dates: start: 20161118, end: 20161121
  25. IBUPROFEN. [Concomitant]
     Active Substance: IBUPROFEN
     Dosage: 200 MG, 3X/DAY (CUMULATIVE DOSE TO FIRST REACTION: 246000.0 MG)
     Route: 048
     Dates: start: 20180308, end: 20180621
  26. MACROGOL [Concomitant]
     Active Substance: POLYETHYLENE GLYCOLS
     Indication: CONSTIPATION
     Dosage: 1 DF, 1X/DAY
     Route: 048
     Dates: start: 20170922, end: 20190326
  27. CO?AMOXICLAV [AMOXICILLIN;CLAVULANATE POTASSIUM] [Concomitant]
     Active Substance: AMOXICILLIN\CLAVULANATE POTASSIUM
     Dosage: 500 MG ONCE DAILY
     Route: 048
     Dates: start: 20170125, end: 20170130
  28. TRASTUZUMAB (UNKNOWN) [Suspect]
     Active Substance: TRASTUZUMAB
     Dosage: 300 MG (DOSAGE FORM: 230; CUMULATIVE DOSE TO FIRST REACTION: 1966.304 MG)
     Route: 042
     Dates: start: 20181214
  29. DEXAMETHASONE. [Concomitant]
     Active Substance: DEXAMETHASONE
     Indication: VISUAL IMPAIRMENT
     Dosage: 8 MG, 1X/DAY (CUMULATIVE DOSE TO FIRST REACTION: 32 MG)
     Route: 048
     Dates: start: 20181208, end: 20181213
  30. DEXAMETHASONE. [Concomitant]
     Active Substance: DEXAMETHASONE
     Dosage: 1 MG, 1X/DAY (CUMULATIVE DOSE TO FIRST REACTION: 32 MG)
     Route: 048
     Dates: start: 20170831, end: 20180308
  31. DEXAMETHASONE. [Concomitant]
     Active Substance: DEXAMETHASONE
     Dosage: 0.5 MG, 1X/DAY (CUMULATIVE DOSE TO FIRST REACTION: 32 MG)
     Route: 048
     Dates: start: 20180308, end: 20180419
  32. LAXIDO [Concomitant]
     Active Substance: POLYETHYLENE GLYCOL 3350\POTASSIUM CHLORIDE\SODIUM BICARBONATE\SODIUM CHLORIDE
     Indication: CONSTIPATION
     Dosage: 2 SACHET
     Route: 048
     Dates: start: 20171009, end: 20190326
  33. ORAMORPH [Concomitant]
     Active Substance: MORPHINE SULFATE
     Indication: PAIN
     Dosage: 5 MG
     Route: 048
     Dates: start: 20180830, end: 20190326
  34. OXYCONTIN [Concomitant]
     Active Substance: OXYCODONE HYDROCHLORIDE
     Indication: PAIN
     Dosage: UNK UNK, 2X/DAY
     Route: 048
     Dates: start: 20171116, end: 20180621
  35. TINZAPARIN [Concomitant]
     Active Substance: TINZAPARIN
     Dosage: 4500 UNIT, EVERY 1 DAY
     Route: 058
     Dates: start: 20181205, end: 20181212
  36. BUPRENORPHINE. [Concomitant]
     Active Substance: BUPRENORPHINE
     Indication: PAIN
     Dosage: UNK UNK, WEEKLY
     Route: 062
     Dates: start: 20181023, end: 20181212
  37. CASSIA SENNA [Concomitant]
     Active Substance: HERBALS\SENNOSIDES
     Indication: PRODUCT USED FOR UNKNOWN INDICATION
     Dosage: 15 MG, 1X/DAY (CUMULATIVE DOSE TO FIRST REACTION: 3644.375 MG)
     Route: 048
     Dates: start: 20170922, end: 20180404
  38. DEXAMETHASONE. [Concomitant]
     Active Substance: DEXAMETHASONE
     Dosage: 0.25 MG, 1X/DAY CUMULATIVE DOSE TO FIRST REACTION: 32 MG)
     Route: 048
     Dates: start: 20180419, end: 20180510
  39. DEXAMETHASONE. [Concomitant]
     Active Substance: DEXAMETHASONE
     Dosage: 8 MG, 1X/DAY, (CUMULATIVE DOSE TO FIRST REACTION: 32 MG)
     Route: 048
     Dates: start: 20161116, end: 20161119
  40. METOCLOPRAMIDE. [Concomitant]
     Active Substance: METOCLOPRAMIDE
     Indication: NAUSEA
     Dosage: UNK
     Route: 042
     Dates: start: 20161117, end: 20161117
  41. CO?AMOXICLAV [AMOXICILLIN;CLAVULANATE POTASSIUM] [Concomitant]
     Active Substance: AMOXICILLIN\CLAVULANATE POTASSIUM
     Dosage: 500 MG ONCE DAILY
     Route: 048
     Dates: start: 20161207
  42. LACTULOSE. [Concomitant]
     Active Substance: LACTULOSE
     Indication: CONSTIPATION
     Dosage: UNK
     Dates: start: 20180830, end: 20190326
  43. DALTEPARIN [Concomitant]
     Active Substance: DALTEPARIN
     Indication: DEEP VEIN THROMBOSIS
     Dosage: UNK
     Dates: start: 20170418, end: 20180510
  44. TRASTUZUMAB (UNKNOWN) [Suspect]
     Active Substance: TRASTUZUMAB
     Dosage: 600 MG, EVERY 3 WEEKS (DOSAGE FORM: 230; CUMULATIVE DOSE TO FIRST REACTION: 1966.304 MG)
     Route: 042
     Dates: start: 20161117
  45. PERTUZUMAB. [Suspect]
     Active Substance: PERTUZUMAB
     Indication: BREAST CANCER METASTATIC
     Dosage: 840 MG (PLANNED NUMBER OF CYCLES COMPLETED) (DOSAGE FORM: 230; CUMULATIVE DOSE TO FIRST REACTION: 13
     Route: 042
     Dates: start: 20161020, end: 20161020
  46. PERTUZUMAB. [Suspect]
     Active Substance: PERTUZUMAB
     Dosage: 420 MG, EVERY 3 WEEKS (DOSAGE FORM: 230; CUMULATIVE DOSE TO FIRST REACTION: 1376.413 MG)
     Route: 042
     Dates: start: 20161117, end: 20181122
  47. BISACODYL. [Concomitant]
     Active Substance: BISACODYL
     Indication: CONSTIPATION
     Dosage: UNK (DOSAGE FORM: 245)
     Route: 048
     Dates: start: 20170109, end: 20190326
  48. CANESTEN [Concomitant]
     Active Substance: CLOTRIMAZOLE
  49. CHLORPHENAMINE [Concomitant]
     Active Substance: CHLORPHENIRAMINE MALEATE
     Dosage: 10 MG, UNK
     Route: 042
     Dates: start: 20161117, end: 20161117
  50. DEXAMETHASONE. [Concomitant]
     Active Substance: DEXAMETHASONE
     Indication: SEIZURE
     Dosage: 12 MG, 1X/DAY (CUMULATIVE DOSE TO FIRST REACTION: 32 MG)
     Route: 048
     Dates: start: 20181214, end: 20190124
  51. DEXAMETHASONE. [Concomitant]
     Active Substance: DEXAMETHASONE
     Dosage: 0.25 UG, 1X/DAY (CUMULATIVE DOSE TO FIRST REACTION: 32 MG)
     Route: 048
     Dates: start: 20180621, end: 20190326
  52. LANSOPRAZOLE. [Concomitant]
     Active Substance: LANSOPRAZOLE
     Dosage: 30 MG, 1X/DAY (CUMULATIVE DOSE TO FIRST REACTION: 23790.0 MG)
     Route: 048
     Dates: start: 20190326
  53. CO?AMOXICLAV [AMOXICILLIN;CLAVULANATE POTASSIUM] [Concomitant]
     Active Substance: AMOXICILLIN\CLAVULANATE POTASSIUM
     Dosage: 1.2G ONCE DAILY
     Route: 042
     Dates: start: 20170122, end: 20170124
  54. OXYCODONE [Concomitant]
     Active Substance: OXYCODONE
     Dosage: UNK
     Dates: start: 20171101, end: 20171130

REACTIONS (9)
  - Back pain [Not Recovered/Not Resolved]
  - Spinal compression fracture [Recovered/Resolved]
  - Deep vein thrombosis [Recovered/Resolved]
  - Ejection fraction decreased [Recovered/Resolved]
  - Peripheral swelling [Not Recovered/Not Resolved]
  - Swelling face [Recovered/Resolved]
  - Constipation [Recovering/Resolving]
  - Disease progression [Fatal]
  - Joint swelling [Not Recovered/Not Resolved]

NARRATIVE: CASE EVENT DATE: 20170122
